FAERS Safety Report 23097548 (Version 4)
Quarter: 2025Q3

REPORT INFORMATION
  Report Type: Spontaneous
  Country: JP (occurrence: JP)
  Receive Date: 20231023
  Receipt Date: 20250816
  Transmission Date: 20251020
  Serious: Yes (Hospitalization, Other)
  Sender: ACCORD
  Company Number: JP-Accord-386165

PATIENT
  Age: 45 Year
  Sex: Female

DRUGS (2)
  1. CAPECITABINE [Suspect]
     Active Substance: CAPECITABINE
     Indication: Invasive ductal breast carcinoma
     Dosage: 2,500 MG/M2 DAILY FOR 2 WEEKS
  2. CAPECITABINE [Suspect]
     Active Substance: CAPECITABINE
     Indication: Breast cancer stage II
     Dosage: 2,500 MG/M2 DAILY FOR 2 WEEKS

REACTIONS (2)
  - COVID-19 [Unknown]
  - Neutropenia [Recovered/Resolved]
